FAERS Safety Report 7229543-2 (Version None)
Quarter: 2011Q1

REPORT INFORMATION
  Report Type: 
  Country: None (occurrence: None)
  Receive Date: 20110117
  Receipt Date: 20100512
  Transmission Date: 20110831
  Serious: No
  Sender: FDA-Public Use
  Company Number: US-TYCO HEALTHCARE/MALLINCKRODT-T201001239

PATIENT
  Sex: Male

DRUGS (1)
  1. OPTIRAY 350 [Suspect]
     Indication: ANGIOGRAM
     Dosage: 100 ML, SINGLE
     Route: 042
     Dates: start: 20100406, end: 20100406

REACTIONS (2)
  - RASH MACULAR [None]
  - RASH [None]
